FAERS Safety Report 9614807 (Version 1)
Quarter: 2013Q4

REPORT INFORMATION
  Report Type: Spontaneous
  Country: US (occurrence: US)
  Receive Date: 20131011
  Receipt Date: 20131011
  Transmission Date: 20140711
  Serious: No
  Sender: FDA-Public Use
  Company Number: US-PURDUE-USA-2013-0097522

PATIENT
  Age: 44 Year
  Sex: Male

DRUGS (2)
  1. BUTRANS [Suspect]
     Indication: BACK PAIN
     Dosage: 10 MCG, WEEKLY
     Route: 062
     Dates: start: 20130107
  2. BUTRANS [Suspect]
     Indication: MUSCULOSKELETAL DISCOMFORT

REACTIONS (2)
  - Dysgeusia [Recovered/Resolved]
  - Inadequate analgesia [Not Recovered/Not Resolved]
